FAERS Safety Report 19814526 (Version 1)
Quarter: 2021Q3

REPORT INFORMATION
  Report Type: Spontaneous
  Country: US (occurrence: US)
  Receive Date: 20210908
  Receipt Date: 20210908
  Transmission Date: 20211014
  Serious: Yes (Other)
  Sender: FDA-Public Use
  Company Number: None

PATIENT
  Age: 51 Year
  Sex: Female
  Weight: 65.86 kg

DRUGS (2)
  1. SEROQUEL (GENERIC) [Suspect]
     Active Substance: QUETIAPINE FUMARATE
     Indication: MANIA
  2. SEROQUEL (GENERIC) [Suspect]
     Active Substance: QUETIAPINE FUMARATE
     Indication: BIPOLAR I DISORDER
     Dosage: ?          OTHER STRENGTH:300MGX2PO HS ;?
     Route: 048
     Dates: start: 201208

REACTIONS (8)
  - Panic attack [None]
  - Vomiting [None]
  - Agitation [None]
  - Product substitution issue [None]
  - Nausea [None]
  - Insomnia [None]
  - Drug ineffective [None]
  - Feeling abnormal [None]

NARRATIVE: CASE EVENT DATE: 20120820
